FAERS Safety Report 15714423 (Version 5)
Quarter: 2019Q4

REPORT INFORMATION
  Report Type: Spontaneous
  Country: US (occurrence: US)
  Receive Date: 20181212
  Receipt Date: 20191118
  Transmission Date: 20200122
  Serious: No
  Sender: FDA-Public Use
  Company Number: US-SA-2018SA337166

PATIENT
  Age: 76 Year
  Sex: Male
  Weight: 82.55 kg

DRUGS (15)
  1. FISH OIL [Concomitant]
     Active Substance: FISH OIL
  2. SOTALOL. [Concomitant]
     Active Substance: SOTALOL
  3. ELIQUIS [Concomitant]
     Active Substance: APIXABAN
     Dosage: 1 DF, BID
     Route: 048
  4. NEXIUM I.V. [Concomitant]
     Active Substance: ESOMEPRAZOLE SODIUM
     Dosage: 1 DF, QD
     Route: 048
  5. CLOPIDOGREL [Concomitant]
     Active Substance: CLOPIDOGREL BISULFATE
  6. ASPIR [Concomitant]
     Active Substance: ASPIRIN
     Dosage: 81 MG, QD
     Route: 048
  7. LEVOTHYROXINE. [Concomitant]
     Active Substance: LEVOTHYROXINE
     Dosage: 1 DF, QD
  8. ALPRAZOLAM. [Concomitant]
     Active Substance: ALPRAZOLAM
     Dosage: 1 TO 1.5 TABLET ONCE A DAY
  9. LEVOCETIRIZINE [Concomitant]
     Active Substance: LEVOCETIRIZINE
     Dosage: 0.5 DF, QD
     Route: 048
  10. LEVOTHYROXINE SODIUM. [Concomitant]
     Active Substance: LEVOTHYROXINE SODIUM
  11. FLUTICASONE PROPIONATE. [Concomitant]
     Active Substance: FLUTICASONE PROPIONATE
  12. PRALUENT [Suspect]
     Active Substance: ALIROCUMAB
     Indication: TYPE V HYPERLIPIDAEMIA
     Dosage: 75 MG, QOW
     Route: 058
     Dates: start: 20170405, end: 20190701
  13. GLUCOSAMINE [Concomitant]
     Active Substance: GLUCOSAMINE
     Route: 048
  14. METOPROLOL SUCCINATE. [Concomitant]
     Active Substance: METOPROLOL SUCCINATE
     Dosage: 1 DF, QD
     Route: 048
  15. RAMIPRIL. [Concomitant]
     Active Substance: RAMIPRIL

REACTIONS (9)
  - Product dose omission [Unknown]
  - Dysphonia [Not Recovered/Not Resolved]
  - Vocal cord dysfunction [Unknown]
  - Oropharyngeal pain [Not Recovered/Not Resolved]
  - Chest discomfort [Unknown]
  - Injection site haemorrhage [Not Recovered/Not Resolved]
  - Bronchitis [Recovered/Resolved]
  - Palpitations [Recovered/Resolved]
  - Injection site haematoma [Not Recovered/Not Resolved]

NARRATIVE: CASE EVENT DATE: 20181215
